FAERS Safety Report 5317792-X (Version None)
Quarter: 2007Q2

REPORT INFORMATION
  Report Type: 
  Country: None (occurrence: None)
  Receive Date: 20070507
  Receipt Date: 20070427
  Transmission Date: 20071010
  Serious: Yes (Other)
  Sender: FDA-Public Use
  Company Number: US-AVENTIS-200711363US

PATIENT
  Age: 80 Year
  Sex: Female

DRUGS (8)
  1. LANTUS [Suspect]
     Dosage: DOSE: 60 VIA VIAL
  2. LANTUS [Suspect]
     Dosage: DOSE: 25 VIA CARTRIDGE
  3. OPTICLIK (INSULIN INJECTION PEN) [Suspect]
     Dates: start: 20070201
  4. AVAPRO [Concomitant]
     Dosage: DOSE: UNK
  5. CADUET [Concomitant]
     Dosage: DOSE: UNK
  6. ASPIRIN [Concomitant]
     Dosage: DOSE: UNK
  7. NOVOLOG [Concomitant]
     Dosage: DOSE: UNK; FREQUENCY: BEFORE MEALS
  8. TOPROL-XL [Concomitant]
     Dosage: DOSE: UNK

REACTIONS (9)
  - AORTIC STENOSIS [None]
  - BLOOD GLUCOSE DECREASED [None]
  - BLOOD GLUCOSE INCREASED [None]
  - CARDIAC MURMUR [None]
  - DIZZINESS [None]
  - DRUG INEFFECTIVE [None]
  - GLYCOSYLATED HAEMOGLOBIN INCREASED [None]
  - LABORATORY TEST ABNORMAL [None]
  - NERVOUSNESS [None]
